FAERS Safety Report 4933798-4 (Version None)
Quarter: 2006Q1

REPORT INFORMATION
  Report Type: 
  Country: None (occurrence: None)
  Receive Date: 20060306
  Receipt Date: 20060221
  Transmission Date: 20060701
  Serious: Yes (Disabling, Other)
  Sender: FDA-Public Use
  Company Number: US-MERCK-0602USA05215

PATIENT
  Age: 49 Year
  Sex: Male
  Weight: 148 kg

DRUGS (22)
  1. VIOXX [Suspect]
     Indication: JOINT STIFFNESS
     Route: 048
     Dates: start: 20021001, end: 20030701
  2. VIOXX [Suspect]
     Route: 048
     Dates: start: 20010704, end: 20020101
  3. VIOXX [Suspect]
     Indication: PAIN
     Route: 048
     Dates: start: 20021001, end: 20030701
  4. VIOXX [Suspect]
     Route: 048
     Dates: start: 20010704, end: 20020101
  5. ALLOPURINOL [Concomitant]
     Indication: PAIN
     Route: 065
     Dates: start: 19930101
  6. ASPIRIN [Concomitant]
     Indication: PAIN
     Route: 065
     Dates: start: 19900101, end: 20010101
  7. ATACAND [Concomitant]
     Indication: HYPERTENSION
     Route: 065
     Dates: start: 20010816
  8. CEPHALEXIN [Concomitant]
     Indication: BACTERIAL INFECTION
     Route: 065
  9. CELEXA [Concomitant]
     Indication: DEPRESSION
     Route: 065
  10. COLCHICINE [Suspect]
     Indication: GOUT
     Route: 065
     Dates: start: 19930101
  11. FOLIC ACID [Concomitant]
     Indication: FOLATE DEFICIENCY
     Route: 065
     Dates: start: 20010920
  12. FUROSEMIDE [Concomitant]
     Indication: FLUID RETENTION
     Route: 065
     Dates: start: 20000131, end: 20041201
  13. LEXAPRO [Concomitant]
     Indication: DEPRESSION
     Route: 065
  14. LIPITOR [Concomitant]
     Indication: BLOOD CHOLESTEROL INCREASED
     Route: 065
     Dates: start: 20011219
  15. LOVENOX [Concomitant]
     Route: 065
     Dates: start: 20010902, end: 20030501
  16. METHYLPREDNISOLONE [Concomitant]
     Indication: PAIN
     Route: 065
     Dates: start: 20011001
  17. SULAR [Concomitant]
     Indication: HYPERTENSION
     Route: 065
     Dates: start: 20000131, end: 20010801
  18. TIAZAC [Concomitant]
     Indication: HYPERTENSION
     Route: 065
     Dates: start: 20011120
  19. WARFARIN [Concomitant]
     Route: 065
     Dates: start: 20010902
  20. CATAPRES [Concomitant]
     Route: 065
     Dates: start: 20021210, end: 20030101
  21. PLAVIX [Concomitant]
     Route: 065
     Dates: start: 20010719, end: 20010901
  22. WARFARIN [Concomitant]
     Route: 065
     Dates: start: 20010902

REACTIONS (5)
  - AZOTAEMIA [None]
  - CAROTID ARTERY OCCLUSION [None]
  - CEREBROVASCULAR ACCIDENT [None]
  - RENAL FAILURE [None]
  - TRANSIENT ISCHAEMIC ATTACK [None]
